FAERS Safety Report 7312392-4 (Version None)
Quarter: 2011Q1

REPORT INFORMATION
  Report Type: 
  Country: None (occurrence: None)
  Receive Date: 20110224
  Receipt Date: 20110210
  Transmission Date: 20110831
  Serious: Yes (Death, Hospitalization, Other)
  Sender: FDA-Public Use
  Company Number: US-CELGENEUS-163-21880-10122778

PATIENT
  Sex: Male

DRUGS (7)
  1. REVLIMID [Suspect]
     Route: 048
     Dates: start: 20100601, end: 20101217
  2. REVLIMID [Suspect]
     Route: 048
     Dates: start: 20100409
  3. ALDACTONE [Concomitant]
     Indication: BLOOD PRESSURE
     Route: 065
  4. LANTUS [Concomitant]
     Route: 065
  5. METOPROLOL TARTRATE [Concomitant]
     Indication: BLOOD PRESSURE
     Route: 065
  6. GLIPIZIDE [Concomitant]
     Route: 065
  7. METFORMIN [Concomitant]
     Route: 065

REACTIONS (5)
  - CHRONIC LYMPHOCYTIC LEUKAEMIA [None]
  - ASTHENIA [None]
  - HYPOXIA [None]
  - CARDIAC FAILURE CONGESTIVE [None]
  - DEEP VEIN THROMBOSIS [None]
